FAERS Safety Report 7937677-X (Version None)
Quarter: 2011Q4

REPORT INFORMATION
  Report Type: 
  Country: None (occurrence: None)
  Receive Date: 20111123
  Receipt Date: 20111115
  Transmission Date: 20120403
  Serious: Yes (Hospitalization)
  Sender: FDA-Public Use
  Company Number: PHHY2011US66279

PATIENT
  Sex: Female
  Weight: 54.422 kg

DRUGS (6)
  1. GABAPENTIN [Concomitant]
     Dosage: 100 MG, TID
     Route: 048
  2. AMANTADINE HCL [Concomitant]
     Dosage: 100 MG, TID
     Route: 048
  3. LORTAB [Concomitant]
     Dosage: 5/500 MG, TID PRN
     Route: 048
  4. GILENYA [Suspect]
     Indication: MULTIPLE SCLEROSIS
     Dosage: 0.5 MG, QD
     Route: 048
     Dates: start: 20110527
  5. BACLOFEN [Concomitant]
     Dosage: 10 MG, TID
     Route: 048
  6. FAMPRIDINE [Concomitant]
     Dosage: 10 MG, Q12H
     Route: 048

REACTIONS (8)
  - SYNCOPE [None]
  - LOSS OF CONSCIOUSNESS [None]
  - LYMPHOCYTE COUNT DECREASED [None]
  - VISION BLURRED [None]
  - DIZZINESS [None]
  - SKIN DISCOLOURATION [None]
  - HEAD TITUBATION [None]
  - NEUTROPHIL COUNT INCREASED [None]
